FAERS Safety Report 8938410 (Version 2)
Quarter: 2013Q1

REPORT INFORMATION
  Report Type: Other
  Country: JP (occurrence: JP)
  Receive Date: 20121130
  Receipt Date: 20130222
  Transmission Date: 20140127
  Serious: Yes (Other)
  Sender: FDA-Public Use
  Company Number: JP-ACTELION-A-CH2012-75365

PATIENT
  Age: 58 Year
  Sex: Female

DRUGS (3)
  1. TRACLEER [Suspect]
     Indication: PORTOPULMONARY HYPERTENSION
     Dosage: 125 MG, QD
     Route: 048
  2. TRACLEER [Suspect]
     Dosage: 31.25 MG, QD
     Route: 048
  3. SILDENAFIL [Concomitant]

REACTIONS (2)
  - Hepatic cancer [Unknown]
  - Pulmonary arterial pressure abnormal [Recovering/Resolving]
